FAERS Safety Report 8073604-5 (Version None)
Quarter: 2012Q1

REPORT INFORMATION
  Report Type: 
  Country: None (occurrence: None)
  Receive Date: 20120126
  Receipt Date: 20120116
  Transmission Date: 20120608
  Serious: Yes (Life-Threatening)
  Sender: FDA-Public Use
  Company Number: NL-TEVA-318936ISR

PATIENT
  Age: 40 Year
  Sex: Female

DRUGS (3)
  1. OXAZEPAM [Suspect]
     Indication: ANXIETY
     Dosage: 30 MILLIGRAM;
     Route: 048
     Dates: start: 20111114, end: 20111130
  2. OXAZEPAM [Suspect]
     Indication: COMPULSIONS
     Dosage: 40 MILLIGRAM;
     Dates: end: 20111130
  3. CYMBALTA CAPSULES 30 MG [Concomitant]
     Dosage: 40 MILLIGRAM;
     Route: 048
     Dates: start: 20111114

REACTIONS (3)
  - SUICIDAL IDEATION [None]
  - AGITATION [None]
  - WITHDRAWAL SYNDROME [None]
